FAERS Safety Report 9608690 (Version 2)
Quarter: 2013Q4

REPORT INFORMATION
  Report Type: Spontaneous
  Country: US (occurrence: US)
  Receive Date: 20131009
  Receipt Date: 20131009
  Transmission Date: 20140711
  Serious: No
  Sender: FDA-Public Use
  Company Number: US-BAXTER-2013BAX014798

PATIENT
  Age: 63 Year
  Sex: Male

DRUGS (2)
  1. DIANEAL LOW CALCIUM [Suspect]
     Indication: PERITONEAL DIALYSIS
     Route: 033
     Dates: start: 20111231
  2. DIANEAL LOW CALCIUM [Suspect]
     Indication: PERITONEAL DIALYSIS
     Route: 033
     Dates: start: 20111231

REACTIONS (4)
  - Hypophagia [Recovered/Resolved]
  - Diarrhoea [Recovered/Resolved with Sequelae]
  - Hypotension [Not Recovered/Not Resolved]
  - Discomfort [Unknown]
